FAERS Safety Report 7741320-2 (Version None)
Quarter: 2011Q3

REPORT INFORMATION
  Report Type: 
  Country: None (occurrence: None)
  Receive Date: 20110909
  Receipt Date: 20110901
  Transmission Date: 20111222
  Serious: Yes (Hospitalization, Other)
  Sender: FDA-Public Use
  Company Number: US-BAYER-201038307NA

PATIENT
  Age: 29 Year
  Sex: Female
  Weight: 49.887 kg

DRUGS (19)
  1. ANTIBIOTICS [Concomitant]
     Dosage: UNK
     Dates: start: 20080901
  2. PROTONIX [Concomitant]
  3. PROTONIX [Concomitant]
     Dosage: 40 MG, UNK
     Route: 042
     Dates: start: 20080901
  4. REGLAN [Concomitant]
     Dosage: 10 MG, UNK
     Dates: start: 20081201
  5. LEXAPRO [Concomitant]
     Dosage: 5 MG, UNK
     Dates: start: 20081201
  6. TPN [Concomitant]
     Indication: PAIN MANAGEMENT
     Dosage: UNK
     Dates: start: 20080901, end: 20081001
  7. NOVOLIN R [Concomitant]
     Dosage: UNK UNK, PRN
     Dates: start: 20081001
  8. DILAUDID [Concomitant]
     Indication: PAIN
     Dosage: 8 MG, UNK
     Dates: start: 20081201
  9. ENZYME PREPARATIONS [Concomitant]
     Dosage: 10 MG, UNK
     Dates: start: 20081201
  10. YASMIN [Suspect]
     Indication: ACNE
  11. IRON SULFATETHIAMIN COMPOUND TAB [Concomitant]
     Dosage: 325 MG, UNK
     Dates: start: 20081201
  12. ZOFRAN [Concomitant]
     Dosage: UNK
     Dates: start: 20090101
  13. ACETAMINOPHEN W/ CODEINE [Concomitant]
     Dosage: UNK
     Dates: start: 20080925
  14. BETA BLOCKING AGENTS [Concomitant]
     Dosage: UNK
     Dates: start: 20081001
  15. PROCHLORPERAZINE [Concomitant]
     Dosage: UNK
     Dates: start: 20080618, end: 20080718
  16. COLACE [Concomitant]
     Dosage: 10 MG, UNK
     Dates: start: 20081201
  17. FLAGYL [Concomitant]
     Dosage: UNK
     Dates: start: 20090101
  18. AMLODIPINE [Concomitant]
     Dosage: UNK
     Dates: start: 20090101
  19. HYDROCODONE BITARTRATE AND ACETAMINOPHEN [Concomitant]
     Dosage: UNK
     Dates: start: 20061105, end: 20090303

REACTIONS (11)
  - CHOLECYSTITIS CHRONIC [None]
  - VOMITING [None]
  - MENTAL DISORDER [None]
  - INJURY [None]
  - CHOLANGITIS [None]
  - POSTPARTUM DEPRESSION [None]
  - PANCREATITIS NECROTISING [None]
  - NAUSEA [None]
  - ERUCTATION [None]
  - CHOLELITHIASIS [None]
  - ABDOMINAL PAIN [None]
